FAERS Safety Report 9361452 (Version 1)
Quarter: 2013Q2

REPORT INFORMATION
  Report Type: Spontaneous
  Country: CA (occurrence: CA)
  Receive Date: 20130621
  Receipt Date: 20130621
  Transmission Date: 20140414
  Serious: Yes (Other)
  Sender: FDA-Public Use
  Company Number: CA-TEVA-414273USA

PATIENT
  Sex: Male
  Weight: 33 kg

DRUGS (11)
  1. NOVO-DIVALPROEX [Suspect]
     Dosage: ENTERIC COATED
     Route: 048
  2. CALCIUM + MAGNESIUM [Concomitant]
  3. CALCIUM CARBONATE [Concomitant]
  4. CARNITOR [Concomitant]
  5. DIASTAT [Concomitant]
  6. EPIVAL [Concomitant]
     Dosage: ENTERIC COATED
  7. FLINTSTONES MULTIPLE VITAMINS COMPLETE [Concomitant]
     Dosage: CHEWABLE
  8. KEPPRA [Concomitant]
  9. SELENIUM [Concomitant]
  10. ZINC [Concomitant]
  11. ZONISAMIDE [Concomitant]

REACTIONS (4)
  - Condition aggravated [Recovered/Resolved]
  - Convulsion [Recovered/Resolved]
  - Drug ineffective [Recovered/Resolved]
  - Product substitution issue [Recovered/Resolved]
